FAERS Safety Report 4365010-1 (Version None)
Quarter: 2004Q2

REPORT INFORMATION
  Report Type: 
  Country: None (occurrence: None)
  Receive Date: 20040521
  Receipt Date: 20040510
  Transmission Date: 20050107
  Serious: Yes (Life-Threatening)
  Sender: FDA-Public Use
  Company Number: 04P-062-0257546-00

PATIENT
  Age: 25 Year
  Sex: Male
  Weight: 70 kg

DRUGS (6)
  1. SEVOFLURANE [Suspect]
     Indication: ANAESTHESIA
     Dosage: 1 %, INHALATION
     Route: 055
  2. SUFENTANIL [Concomitant]
  3. NITROGLYCERIN [Concomitant]
  4. CRYSTALLOID SOLUTION [Concomitant]
  5. PROPOFOL [Concomitant]
  6. NOREPINEPHRINE [Concomitant]

REACTIONS (8)
  - ACIDOSIS [None]
  - BLOOD LACTIC ACID DECREASED [None]
  - BLOOD PRESSURE DECREASED [None]
  - ELECTROCARDIOGRAM ABNORMAL [None]
  - HEART RATE INCREASED [None]
  - HYPERTHERMIA MALIGNANT [None]
  - PCO2 INCREASED [None]
  - POST PROCEDURAL COMPLICATION [None]
